FAERS Safety Report 22297225 (Version 1)
Quarter: 2023Q2

REPORT INFORMATION
  Report Type: Spontaneous
  Country: GB (occurrence: GB)
  Receive Date: 20230509
  Receipt Date: 20230509
  Transmission Date: 20230722
  Serious: Yes (Life-Threatening, Hospitalization, Disabling, Other)
  Sender: FDA-Public Use
  Company Number: GB-MHRA-MED-202304210854211400-DSHWG

PATIENT
  Age: 15 Year
  Sex: Male

DRUGS (8)
  1. CARBAMAZEPINE [Suspect]
     Active Substance: CARBAMAZEPINE
     Indication: Seizure
     Dosage: 200 MILLIGRAM DAILY; 200 MILLIGRAM, QD (200MG PER DAY), DURATION : 48 DAYS
     Route: 065
     Dates: start: 20160312, end: 20160429
  2. LAMOTRIGINE [Suspect]
     Active Substance: LAMOTRIGINE
     Indication: Seizure
     Dosage: MAXIMUM DOSE 250MG PER DAY; DURATION : 602 DAYS
     Route: 065
     Dates: start: 20161012, end: 20180606
  3. LEVETIRACETAM [Suspect]
     Active Substance: LEVETIRACETAM
     Indication: Seizure
     Dosage: MAXIMUM DOSE 2000MG PER DAY; DURATION : 199 DAYS
     Route: 065
     Dates: start: 20180616, end: 20190101
  4. LEVETIRACETAM [Suspect]
     Active Substance: LEVETIRACETAM
     Dosage: 1000 MILLIGRAM DAILY; 1000 MILLIGRAM, QD (1000MG PER DAY), DURATION : 359 DAYS
     Route: 065
     Dates: start: 20160429, end: 20170423
  5. LACOSAMIDE [Suspect]
     Active Substance: LACOSAMIDE
     Indication: Seizure
     Dosage: 300 MILLIGRAM DAILY; 300 MILLIGRAM, QD (300MG PER DAY;), DURATION : 184 DAYS
     Route: 065
     Dates: start: 20180208, end: 20180811
  6. VALPROIC ACID [Suspect]
     Active Substance: VALPROIC ACID
     Indication: Seizure
     Dosage: MAX DOSE 1200MG PER DAY; DURATION : 135 DAYS
     Route: 065
     Dates: start: 20160429, end: 20160911
  7. CLOBAZAM [Suspect]
     Active Substance: CLOBAZAM
     Indication: Seizure
     Dosage: MAXIMUM DOSE 20MG PER DAY; DURATION : 311 DAYS
     Route: 065
     Dates: start: 20180609, end: 20190416
  8. PHENYTOIN [Suspect]
     Active Substance: PHENYTOIN
     Indication: Partial seizures
     Dosage: 250 MILLIGRAM DAILY; 250 MILLIGRAM, QD (250MG PER DAY), DURATION : 744 DAYS
     Route: 065
     Dates: start: 20180612, end: 20200625

REACTIONS (4)
  - Fatigue [Recovered/Resolved]
  - Seizure [Recovered/Resolved]
  - Memory impairment [Recovered/Resolved]
  - Medication error [Unknown]

NARRATIVE: CASE EVENT DATE: 20180101
